FAERS Safety Report 4783751-9 (Version None)
Quarter: 2005Q3

REPORT INFORMATION
  Report Type: 
  Country: None (occurrence: None)
  Receive Date: 20050928
  Receipt Date: 20050916
  Transmission Date: 20060218
  Serious: Yes (Life-Threatening)
  Sender: FDA-Public Use
  Company Number: 217888

PATIENT
  Age: 66 Year
  Sex: Male
  Weight: 92 kg

DRUGS (12)
  1. RITUXIMAB (RITUXIMAB) CONC FOR SOLUTION FOR INFUSION [Suspect]
     Indication: CHRONIC LYMPHOCYTIC LEUKAEMIA
     Dosage: 500 MG/M2, PER PROTOCOL, INTRAVENOUS
     Route: 042
     Dates: start: 20050407
  2. FLUDARABINE PHOSPHATE [Suspect]
     Indication: CHRONIC LYMPHOCYTIC LEUKAEMIA
     Dosage: 25 MG/M2, PER PROTOCOL, INTRAVENOUS
     Route: 042
     Dates: start: 20050408
  3. CYCLOPHOSPHAMIDE [Suspect]
     Indication: CHRONIC LYMPHOCYTIC LEUKAEMIA
     Dosage: 250 MG/M2, PER PROTOCOL, INTRAVENOUS
     Route: 042
  4. AMLODIPINE BESYLATE [Concomitant]
  5. METOPROLOL TARTRATE [Concomitant]
  6. ISOSORBIDE MONONITRATE [Concomitant]
  7. FINASTERIDE [Concomitant]
  8. ALLOPURINOL [Concomitant]
  9. ACICLOVIR (ACYCLOVIR) [Concomitant]
  10. FLUCONAZOLE [Concomitant]
  11. SUMETROLIM (TRIMETHOPRIM, SULFAMETHOXAZOLE) [Concomitant]
  12. CIPROFLOXACIN HCL [Concomitant]

REACTIONS (1)
  - GRANULOCYTOPENIA [None]
